FAERS Safety Report 8988895 (Version 1)
Quarter: 2012Q4

REPORT INFORMATION
  Report Type: 
  Country: BR (occurrence: BR)
  Receive Date: 20121228
  Receipt Date: 20121228
  Transmission Date: 20130627
  Serious: Yes (Hospitalization, Other)
  Sender: FDA-Public Use
  Company Number: PHHY2012BR120252

PATIENT
  Sex: Female

DRUGS (2)
  1. TEGRETOL CR [Suspect]
  2. DEPAKENE [Suspect]
     Dosage: UNK

REACTIONS (4)
  - Convulsion [Recovering/Resolving]
  - Agitation [Recovering/Resolving]
  - Depression [Recovering/Resolving]
  - Diarrhoea [Recovering/Resolving]
